FAERS Safety Report 6943121-1 (Version None)
Quarter: 2010Q3

REPORT INFORMATION
  Report Type: 
  Country: None (occurrence: None)
  Receive Date: 20100825
  Receipt Date: 20100825
  Transmission Date: 20110219
  Serious: Yes (Life-Threatening)
  Sender: FDA-Public Use
  Company Number: None

PATIENT
  Age: 60 Year
  Sex: Female
  Weight: 108 kg

DRUGS (1)
  1. PERMETHRIN [Suspect]
     Indication: ACARODERMATITIS
     Dates: start: 20100402, end: 20100402

REACTIONS (1)
  - ANAPHYLACTIC REACTION [None]
